FAERS Safety Report 4658984-2 (Version None)
Quarter: 2005Q2

REPORT INFORMATION
  Report Type: 
  Country: None (occurrence: None)
  Receive Date: 20050511
  Receipt Date: 20030826
  Transmission Date: 20051028
  Serious: Yes (Hospitalization)
  Sender: FDA-Public Use
  Company Number: US-SANOFI-SYNTHELABO-F01200300901

PATIENT
  Sex: Male
  Weight: 86.6 kg

DRUGS (19)
  1. OXALIPLATIN [Suspect]
     Route: 042
     Dates: start: 20030721, end: 20030721
  2. CAPECITABINE [Suspect]
     Dosage: 1000 MG/M2 TWICE DAILY FROM D1 TO D15, Q3W
     Route: 048
     Dates: start: 20030721, end: 20030729
  3. CARDIZEM [Interacting]
     Dosage: 180 MG
     Route: 048
     Dates: start: 20030808, end: 20030815
  4. LIPITOR [Concomitant]
     Dosage: 10 MG
     Route: 048
  5. TOPROL-XL [Concomitant]
     Dosage: 50 MG
     Route: 048
  6. PREVACID [Concomitant]
     Dosage: 30 MG
     Route: 048
     Dates: start: 20030731
  7. REGLAN [Concomitant]
     Dosage: 10 MG
     Route: 048
     Dates: start: 20030731, end: 20030815
  8. MOTOFEN [Concomitant]
     Dosage: 1 UNIT
     Route: 048
     Dates: start: 20030808, end: 20030815
  9. ROXICET [Concomitant]
     Dosage: 5/325, 1-2 UNITS PRN
     Route: 048
     Dates: start: 20030808
  10. AMBIEN [Concomitant]
     Dosage: 10 MG
     Route: 048
     Dates: start: 20030808
  11. IMODIUM [Concomitant]
     Dosage: 2 UNIT
     Route: 048
     Dates: start: 20030705
  12. ASPIRIN [Concomitant]
  13. IRON [Concomitant]
  14. ACIDOPHILUS [Concomitant]
  15. COUMADIN [Concomitant]
     Dosage: 1 MG
     Route: 065
  16. ATIVAN [Concomitant]
     Dosage: UNK
     Route: 065
  17. COMPAZINE [Concomitant]
     Dosage: UNK
     Route: 065
  18. MEGACE [Concomitant]
  19. TYLENOL (CAPLET) [Concomitant]
     Dosage: 1000 MG
     Route: 048

REACTIONS (9)
  - ASTHENIA [None]
  - DECREASED APPETITE [None]
  - HYPOKALAEMIA [None]
  - HYPONATRAEMIA [None]
  - HYPOVOLAEMIA [None]
  - NAUSEA [None]
  - OEDEMA PERIPHERAL [None]
  - VENTRICULAR HYPERTROPHY [None]
  - VOMITING [None]
